FAERS Safety Report 10058019 (Version 1)
Quarter: 2014Q2

REPORT INFORMATION
  Report Type: Spontaneous
  Country: US (occurrence: None)
  Receive Date: 20140403
  Receipt Date: 20140403
  Transmission Date: 20141212
  Serious: Yes (Disabling)
  Sender: FDA-Public Use
  Company Number: None

PATIENT
  Age: 67 Year
  Sex: Male
  Weight: 81.65 kg

DRUGS (1)
  1. SERTRALINE [Suspect]
     Indication: SOCIAL PHOBIA
     Dosage: 50 MG, 1PILL, ONCE DAILY, TAKEN BY MOUTH
     Route: 048
     Dates: start: 20131016, end: 20140227

REACTIONS (3)
  - Libido decreased [None]
  - Erectile dysfunction [None]
  - Erectile dysfunction [None]
